FAERS Safety Report 15292624 (Version 1)
Quarter: 2018Q3

REPORT INFORMATION
  Report Type: Spontaneous
  Country: RU (occurrence: RU)
  Receive Date: 20180819
  Receipt Date: 20180819
  Transmission Date: 20181010
  Serious: Yes (Other)
  Sender: FDA-Public Use
  Company Number: RU-UCBSA-2018035411

PATIENT
  Age: 11 Year
  Sex: Male

DRUGS (2)
  1. BRIVIACT [Suspect]
     Active Substance: BRIVARACETAM
     Indication: PARTIAL SEIZURES
     Dosage: 50 MG, 2X/DAY (BID)
     Dates: start: 2018
  2. TOPIRAMATE. [Concomitant]
     Active Substance: TOPIRAMATE
     Indication: PRODUCT USED FOR UNKNOWN INDICATION

REACTIONS (3)
  - Aggression [Unknown]
  - Psychotic disorder [Unknown]
  - Homicidal ideation [Unknown]
